FAERS Safety Report 16327946 (Version 4)
Quarter: 2021Q3

REPORT INFORMATION
  Report Type: Spontaneous
  Country: RO (occurrence: RO)
  Receive Date: 20190518
  Receipt Date: 20210728
  Transmission Date: 20211014
  Serious: Yes (Other)
  Sender: FDA-Public Use
  Company Number: RO-AUROBINDO-AUR-APL-2019-025625

PATIENT
  Age: 45 Year
  Sex: Female

DRUGS (2)
  1. ENTECAVIR FILM COATED TABLETS [Suspect]
     Active Substance: ENTECAVIR
     Indication: HEPATITIS B
  2. ENTECAVIR FILM COATED TABLETS [Suspect]
     Active Substance: ENTECAVIR
     Indication: CHRONIC HEPATITIS B
     Dosage: 0.5 MILLIGRAM, ONCE A DAY
     Route: 065
     Dates: start: 200901

REACTIONS (6)
  - Gene mutation [Unknown]
  - Viral mutation identified [Unknown]
  - Hepatitis B [Unknown]
  - Pathogen resistance [Unknown]
  - Hepatitis B surface antibody [Unknown]
  - Viraemia [Unknown]
